FAERS Safety Report 6863696-0 (Version None)
Quarter: 2010Q3

REPORT INFORMATION
  Report Type: 
  Country: None (occurrence: None)
  Receive Date: 20100720
  Receipt Date: 20100708
  Transmission Date: 20110219
  Serious: Yes (Hospitalization, Other)
  Sender: FDA-Public Use
  Company Number: 7008373

PATIENT
  Age: 43 Year
  Sex: Female
  Weight: 68 kg

DRUGS (1)
  1. REBIF [Suspect]
     Indication: MULTIPLE SCLEROSIS
     Dosage: 44 MCG, 3 IN 1 WK, SUBCUTANEOUS
     Route: 058
     Dates: start: 20090312

REACTIONS (9)
  - ANXIETY [None]
  - BACK PAIN [None]
  - CHOLELITHIASIS [None]
  - FAMILY STRESS [None]
  - INTESTINAL POLYP [None]
  - NEPHROLITHIASIS [None]
  - PNEUMONIA [None]
  - PULMONARY OEDEMA [None]
  - STRESS [None]
